FAERS Safety Report 6664572-9 (Version None)
Quarter: 2010Q2

REPORT INFORMATION
  Report Type: 
  Country: None (occurrence: None)
  Receive Date: 20100401
  Receipt Date: 20100325
  Transmission Date: 20101027
  Serious: Yes (Life-Threatening, Hospitalization, Disabling, Other)
  Sender: FDA-Public Use
  Company Number: CA-PFIZER INC-2009156397

PATIENT
  Age: 57 Year
  Sex: Male
  Weight: 57.7 kg

DRUGS (35)
  1. IBUPROFEN [Suspect]
     Indication: OSTEOARTHRITIS
     Dosage: HIGH DOSE
     Route: 048
     Dates: start: 20080116, end: 20090101
  2. NAPROXEN [Suspect]
     Indication: OSTEOARTHRITIS
     Dosage: HIGH DOSE
     Route: 048
     Dates: start: 20080116, end: 20090101
  3. BLINDED *NO SUBJECT DRUG [Suspect]
     Indication: OSTEOARTHRITIS
     Dosage: HIGH DOSE
     Route: 048
     Dates: start: 20080116, end: 20090101
  4. BLINDED *PLACEBO [Suspect]
     Indication: OSTEOARTHRITIS
     Dosage: HIGH DOSE
     Route: 048
     Dates: start: 20080116, end: 20090101
  5. BLINDED CELECOXIB [Suspect]
     Indication: OSTEOARTHRITIS
     Dosage: HIGH DOSE
     Route: 048
     Dates: start: 20080116, end: 20090101
  6. IBUPROFEN [Suspect]
     Dosage: HIGH DOSE
     Route: 048
     Dates: start: 20080116, end: 20090101
  7. NAPROXEN [Suspect]
     Dosage: HIGH DOSE
     Route: 048
     Dates: start: 20080116, end: 20090101
  8. IBUPROFEN [Suspect]
     Dosage: LOW DOSE
     Route: 048
     Dates: start: 20071220, end: 20080115
  9. NAPROXEN [Suspect]
     Dosage: LOW DOSE
     Route: 048
     Dates: start: 20071220, end: 20080115
  10. BLINDED *NO SUBJECT DRUG [Suspect]
     Dosage: LOW DOSE
     Route: 048
     Dates: start: 20071220, end: 20080115
  11. BLINDED *PLACEBO [Suspect]
     Dosage: LOW DOSE
     Route: 048
     Dates: start: 20071220, end: 20080115
  12. BLINDED CELECOXIB [Suspect]
     Dosage: LOW DOSE
     Route: 048
     Dates: start: 20071220, end: 20080115
  13. IBUPROFEN [Suspect]
     Dosage: LOW DOSE
     Route: 048
     Dates: start: 20071220, end: 20080115
  14. NAPROXEN [Suspect]
     Dosage: LOW DOSE
     Route: 048
     Dates: start: 20071220, end: 20080115
  15. NEXIUM [Concomitant]
     Indication: PROPHYLAXIS
     Dosage: 40 MG, 1X/DAY
     Route: 048
     Dates: start: 20080820, end: 20090101
  16. NEXIUM [Concomitant]
     Dosage: 20 MG, 1X/DAY
     Route: 048
     Dates: start: 20071219, end: 20080819
  17. ACETYLSALICYLIC ACID [Concomitant]
     Route: 048
     Dates: start: 20020912
  18. AMLODIPINE [Concomitant]
     Route: 048
     Dates: start: 20070123
  19. HYDROCHLOROTHIAZIDE [Concomitant]
     Route: 048
     Dates: start: 20050719
  20. RAMIPRIL [Concomitant]
     Dosage: UNK
     Route: 048
     Dates: start: 20000711
  21. ATORVASTATIN [Concomitant]
     Route: 048
     Dates: start: 20040714
  22. ACETAMINOPHEN [Concomitant]
     Dosage: UNK
     Route: 048
     Dates: start: 20080130
  23. LANTUS [Concomitant]
     Dosage: UNK
     Route: 058
     Dates: start: 20080418
  24. HUMALOG [Concomitant]
     Dosage: UNK
     Route: 058
     Dates: start: 20080418
  25. FLEXERIL [Concomitant]
     Route: 048
     Dates: start: 20081210
  26. TRAMADOL HYDROCHLORIDE [Concomitant]
     Route: 048
     Dates: start: 20081217
  27. SIMVASTATIN [Concomitant]
     Dosage: UNK
     Route: 048
  28. METOPROLOL [Concomitant]
     Dosage: UNK
     Route: 048
  29. ZINC GLUCONATE [Concomitant]
     Dosage: UNK
     Route: 048
  30. FUROSEMIDE [Concomitant]
     Dosage: UNK
     Route: 048
  31. WARFARIN [Concomitant]
     Dosage: UNK
     Route: 048
  32. OXAZEPAM [Concomitant]
     Dosage: UNK
     Route: 048
  33. ASCORBIC ACID [Concomitant]
     Dosage: UNK
     Route: 048
  34. VITAMIN D [Concomitant]
     Dosage: UNK
     Route: 048
  35. CLOPIDOGREL [Concomitant]
     Dosage: UNK
     Route: 048

REACTIONS (7)
  - ANAEMIA [None]
  - ATRIAL FLUTTER [None]
  - DIABETIC KETOACIDOSIS [None]
  - MYOCARDIAL INFARCTION [None]
  - PERIPHERAL ISCHAEMIA [None]
  - PNEUMONIA [None]
  - PULMONARY OEDEMA [None]
